FAERS Safety Report 4274223-9 (Version None)
Quarter: 2004Q1

REPORT INFORMATION
  Report Type: 
  Country: None (occurrence: None)
  Receive Date: 20040115
  Receipt Date: 20040102
  Transmission Date: 20041129
  Serious: Yes (Other)
  Sender: FDA-Public Use
  Company Number: 2004000455

PATIENT
  Age: 66 Year
  Sex: Female
  Weight: 52.1637 kg

DRUGS (9)
  1. ZOLOFT [Suspect]
     Indication: ANXIETY
     Dosage: 25 MG (DAILY), ORAL
     Route: 048
     Dates: start: 20031101
  2. ZOLOFT [Suspect]
     Indication: DEPRESSION
     Dosage: 25 MG (DAILY), ORAL
     Route: 048
     Dates: start: 20031101
  3. ROFECOXIB [Concomitant]
  4. TRAMADOL HCL [Concomitant]
  5. LIOTHYRONINE SODIUM [Concomitant]
  6. LEVOTHYROXINE SODIUM [Concomitant]
  7. ESTRADIOL [Concomitant]
  8. TEMAZEPAM [Concomitant]
  9. ESOMEPRAZOLE (ESOMEPRAZOLE) [Concomitant]

REACTIONS (2)
  - CONSTIPATION [None]
  - HEADACHE [None]
